FAERS Safety Report 10294911 (Version 1)
Quarter: 2014Q3

REPORT INFORMATION
  Report Type: Spontaneous
  Country: US (occurrence: US)
  Receive Date: 20140710
  Receipt Date: 20140710
  Transmission Date: 20150326
  Serious: Yes (Other)
  Sender: FDA-Public Use
  Company Number: US-ABBVIE-14K-163-1256272-00

PATIENT
  Sex: Female
  Weight: 65.38 kg

DRUGS (2)
  1. SYNTHROID [Suspect]
     Active Substance: LEVOTHYROXINE SODIUM
     Indication: THYROID DISORDER
     Dates: start: 2013
  2. UNSPECIFIED MEDICATIONS [Suspect]
     Active Substance: UNSPECIFIED INGREDIENT
     Indication: DIABETES MELLITUS

REACTIONS (6)
  - Goitre [Unknown]
  - Visual impairment [Unknown]
  - Pain [Unknown]
  - Asthenia [Unknown]
  - Aphonia [Unknown]
  - Adverse drug reaction [Unknown]
